FAERS Safety Report 13767875 (Version 1)
Quarter: 2017Q3

REPORT INFORMATION
  Report Type: Spontaneous
  Country: US (occurrence: US)
  Receive Date: 20170719
  Receipt Date: 20170719
  Transmission Date: 20171127
  Serious: No
  Sender: FDA-Public Use
  Company Number: US-PFIZER INC-2017308192

PATIENT
  Age: 37 Year
  Sex: Female
  Weight: 68.4 kg

DRUGS (2)
  1. TAXOTERE [Suspect]
     Active Substance: DOCETAXEL
     Dosage: UNK, WEEKLY
     Dates: start: 20130821, end: 201502
  2. ADRIAMYCIN [Suspect]
     Active Substance: DOXORUBICIN HYDROCHLORIDE
     Dosage: UNK UNK, WEEKLY
     Dates: start: 20130821, end: 201502

REACTIONS (5)
  - Inflammation [Unknown]
  - Depression [Recovering/Resolving]
  - Menopause [Unknown]
  - Anxiety [Recovering/Resolving]
  - Osteoporosis [Unknown]

NARRATIVE: CASE EVENT DATE: 201407
